FAERS Safety Report 9638592 (Version 1)
Quarter: 2013Q4

REPORT INFORMATION
  Report Type: Spontaneous
  Country: US (occurrence: US)
  Receive Date: 20131022
  Receipt Date: 20131022
  Transmission Date: 20140711
  Serious: No
  Sender: FDA-Public Use
  Company Number: US-BRISTOL-MYERS SQUIBB COMPANY-19484542

PATIENT
  Age: 61 Year
  Sex: Male
  Weight: 81.63 kg

DRUGS (10)
  1. ELIQUIS [Suspect]
     Indication: ATRIAL FIBRILLATION
  2. ELIQUIS [Suspect]
     Indication: ATRIAL FLUTTER
  3. WARFARIN SODIUM [Suspect]
  4. FUROSEMIDE [Concomitant]
  5. DIGOXIN [Concomitant]
  6. DILTIAZEM HCL [Concomitant]
  7. LOSARTAN [Concomitant]
  8. VITAMIN B1 [Concomitant]
  9. VITAMIN [Concomitant]
  10. KLOR-CON M [Concomitant]
     Dosage: TAB

REACTIONS (1)
  - Medication error [Unknown]
